FAERS Safety Report 7607922-9 (Version None)
Quarter: 2011Q3

REPORT INFORMATION
  Report Type: 
  Country: None (occurrence: None)
  Receive Date: 20110714
  Receipt Date: 20091219
  Transmission Date: 20111222
  Serious: Yes (Death, Other)
  Sender: FDA-Public Use
  Company Number: US-BAYER-200942923NA

PATIENT
  Age: 83 Year
  Sex: Female
  Weight: 57 kg

DRUGS (18)
  1. TRASYLOL [Suspect]
     Indication: PRODUCT USED FOR UNKNOWN INDICATION
     Dosage: 200 ML, LOADING DOSE AND FOLLOWED BY INFUSION
     Route: 042
     Dates: start: 20070925, end: 20070925
  2. ACETYLSALICYLIC ACID SRT [Concomitant]
     Dosage: UNK
     Route: 048
     Dates: start: 20070923
  3. METOPROLOL SUCCINATE [Concomitant]
     Dosage: UNK
     Route: 042
     Dates: start: 20070923
  4. PANCURONIUM [Concomitant]
     Dosage: UNK
     Route: 042
     Dates: start: 20070925, end: 20070925
  5. RED BLOOD CELLS [Concomitant]
     Dosage: 2 U, UNK
     Route: 042
     Dates: start: 20070925
  6. TRASYLOL [Suspect]
     Dosage: 200 CC PUMP PRIME
     Route: 042
     Dates: start: 20070925, end: 20070925
  7. LIPITOR [Concomitant]
     Dosage: LONG TERM
     Route: 048
  8. FENTANYL [Concomitant]
     Dosage: UNK
     Route: 042
     Dates: start: 20070925
  9. OPTIRAY 240 [IOVERSOL] [Concomitant]
     Indication: CATHETERISATION CARDIAC
     Dosage: UNK
     Dates: start: 20070923
  10. HEPARIN [Concomitant]
     Dosage: UNK
     Route: 042
     Dates: start: 20070923
  11. ROCURONIUM BROMIDE [Concomitant]
     Dosage: UNK
     Route: 042
     Dates: start: 20070925, end: 20070925
  12. INSULIN [Concomitant]
     Dosage: UNK
     Route: 058
     Dates: start: 20070925, end: 20070925
  13. PLASMA [Concomitant]
     Dosage: UNK
     Route: 042
     Dates: start: 20070925
  14. DIOVAN [Concomitant]
     Dosage: LONG TERM
     Route: 048
  15. MIDAZOLAM HCL [Concomitant]
     Dosage: UNK
     Route: 042
     Dates: start: 20070925, end: 20070925
  16. COREG [Concomitant]
     Dosage: UNK
     Route: 048
     Dates: start: 20070923
  17. ANCEF [Concomitant]
     Dosage: UNK
     Route: 042
     Dates: start: 20070925, end: 20070925
  18. MILRINONE [Concomitant]
     Dosage: UNK
     Route: 042
     Dates: start: 20070925

REACTIONS (13)
  - DEATH [None]
  - RENAL FAILURE [None]
  - RENAL IMPAIRMENT [None]
  - RENAL INJURY [None]
  - EMOTIONAL DISTRESS [None]
  - UNEVALUABLE EVENT [None]
  - FEAR [None]
  - BLOOD CREATININE INCREASED [None]
  - ANXIETY [None]
  - INJURY [None]
  - MULTI-ORGAN FAILURE [None]
  - STRESS [None]
  - PAIN [None]
